FAERS Safety Report 8759713 (Version 3)
Quarter: 2013Q4

REPORT INFORMATION
  Report Type: Spontaneous
  Country: GB (occurrence: GB)
  Receive Date: 20120829
  Receipt Date: 20131031
  Transmission Date: 20140711
  Serious: Yes (Other)
  Sender: FDA-Public Use
  Company Number: GB-009507513-1208GBR010388

PATIENT
  Age: 65 Year
  Sex: Female

DRUGS (9)
  1. DEXAMETHASONE TABLETS BP 2.0MG [Suspect]
     Indication: MUSCULAR WEAKNESS
     Dosage: 4 MG, TID
     Route: 048
     Dates: start: 20120627, end: 20120702
  2. ATORVASTATIN [Concomitant]
     Dosage: 20 MG, QD
     Route: 048
  3. BISOPROLOL [Concomitant]
     Dosage: 2.5 MG, QD
     Route: 048
  4. CINNARIZINE [Concomitant]
     Dosage: 30 MG, TID
     Route: 048
  5. DIAZEPAM [Concomitant]
     Dosage: 5 MG, TID
  6. IMIPRAMINE HYDROCHLORIDE [Concomitant]
     Dosage: 25 MG, TID
     Route: 048
  7. IRBESARTAN [Concomitant]
     Dosage: 150 MG, QD
     Route: 048
  8. OMEPRAZOLE [Concomitant]
     Dosage: 20 MG, QD
  9. ORAMORPH [Concomitant]
     Dosage: 25 ML, QID

REACTIONS (2)
  - Generalised erythema [Not Recovered/Not Resolved]
  - Skin warm [Not Recovered/Not Resolved]
